FAERS Safety Report 9149623 (Version 2)
Quarter: 2013Q1

REPORT INFORMATION
  Report Type: Spontaneous
  Country: GB (occurrence: GB)
  Receive Date: 20130308
  Receipt Date: 20130327
  Transmission Date: 20140127
  Serious: Yes (Other)
  Sender: FDA-Public Use
  Company Number: GB-ABBOTT-13P-167-1059767-00

PATIENT
  Age: 82 Year
  Sex: Male

DRUGS (2)
  1. PROSTAP [Suspect]
     Indication: PROSTATE CANCER
     Route: 065
     Dates: start: 201202
  2. PROSTAP SR [Suspect]
     Indication: PROSTATE CANCER
     Route: 058
     Dates: start: 201212

REACTIONS (4)
  - Pulmonary oedema [Unknown]
  - Dyspnoea [Recovered/Resolved]
  - Wheezing [Unknown]
  - Upper respiratory tract infection [Unknown]
